FAERS Safety Report 23868764 (Version 1)
Quarter: 2024Q2

REPORT INFORMATION
  Report Type: Spontaneous
  Country: FR (occurrence: FR)
  Receive Date: 20240517
  Receipt Date: 20240517
  Transmission Date: 20240715
  Serious: Yes (Hospitalization, Other)
  Sender: FDA-Public Use
  Company Number: None

PATIENT
  Age: 75 Year
  Sex: Male
  Weight: 122 kg

DRUGS (2)
  1. RIFAMPIN [Interacting]
     Active Substance: RIFAMPIN
     Indication: Staphylococcal infection
     Dosage: 900 MG, QD
     Route: 048
     Dates: start: 20231002, end: 20231024
  2. RIVAROXABAN [Interacting]
     Active Substance: RIVAROXABAN
     Indication: Cardiac flutter
     Dosage: 20 MG, QD
     Route: 048
     Dates: start: 20230828, end: 20231024

REACTIONS (2)
  - Gastrointestinal haemorrhage [Recovered/Resolved]
  - Melaena [Recovered/Resolved]

NARRATIVE: CASE EVENT DATE: 20231024
